FAERS Safety Report 5122610-9 (Version None)
Quarter: 2006Q4

REPORT INFORMATION
  Report Type: 
  Country: None (occurrence: None)
  Receive Date: 20061004
  Receipt Date: 20060922
  Transmission Date: 20070319
  Serious: Yes (Hospitalization)
  Sender: FDA-Public Use
  Company Number: 228613

PATIENT
  Sex: Male

DRUGS (8)
  1. EFALIZUMAB(EFALIZUMAB) PWDR + SOLVENT, INJECTION SOLN, 125MG [Suspect]
     Indication: PSORIASIS
     Dosage: 0.7 MG/KG, 1/WEEK, SUBCUTANEOUS
     Route: 058
     Dates: start: 20060406, end: 20060720
  2. HYDROCHLOROTHIAZIDE [Concomitant]
  3. FUROSEMIDE [Concomitant]
  4. OLMESARTAN (OLMESARTAN MEDOXOMIL) [Concomitant]
  5. SIMVASTATIN [Concomitant]
  6. ALLOPURINOL [Concomitant]
  7. ETOFYLLINE (ETOFYLLINE) [Concomitant]
  8. CAPTOPRIL [Concomitant]

REACTIONS (1)
  - EPIDIDYMITIS [None]
